FAERS Safety Report 24742997 (Version 1)
Quarter: 2024Q4

REPORT INFORMATION
  Report Type: Spontaneous
  Country: JP (occurrence: JP)
  Receive Date: 20241217
  Receipt Date: 20241217
  Transmission Date: 20250114
  Serious: Yes (Other)
  Sender: BOEHRINGER INGELHEIM
  Company Number: JP-NBI-2024-BI-068540

PATIENT
  Sex: Male
  Weight: 79.4 kg

DRUGS (3)
  1. OFEV [Suspect]
     Active Substance: NINTEDANIB
     Indication: Pulmonary fibrosis
     Route: 048
  2. PREDNISOLONE [Suspect]
     Active Substance: PREDNISOLONE
     Indication: Dyspnoea exertional
  3. PREDNISOLONE [Suspect]
     Active Substance: PREDNISOLONE
     Dosage: GRADUAL DECREASE

REACTIONS (2)
  - Pulmonary fibrosis [Not Recovered/Not Resolved]
  - Disease progression [Not Recovered/Not Resolved]
